FAERS Safety Report 9458073 (Version 1)
Quarter: 2013Q3

REPORT INFORMATION
  Report Type: Spontaneous
  Country: BR (occurrence: BR)
  Receive Date: 20130814
  Receipt Date: 20130814
  Transmission Date: 20140515
  Serious: Yes (Hospitalization, Other)
  Sender: FDA-Public Use
  Company Number: BR-JNJFOC-20130805442

PATIENT
  Age: 40 Year
  Sex: Female
  Weight: 70 kg

DRUGS (8)
  1. REMICADE [Suspect]
     Indication: CROHN^S DISEASE
     Route: 042
     Dates: start: 20121221, end: 20121221
  2. REMICADE [Suspect]
     Indication: CROHN^S DISEASE
     Route: 042
     Dates: start: 20120703, end: 20121221
  3. REMICADE [Suspect]
     Indication: COLITIS ULCERATIVE
     Route: 042
     Dates: start: 20121221, end: 20121221
  4. REMICADE [Suspect]
     Indication: COLITIS ULCERATIVE
     Route: 042
     Dates: start: 20120703, end: 20121221
  5. MESALAZINE [Concomitant]
     Indication: COLITIS ULCERATIVE
     Route: 065
     Dates: start: 20101005
  6. FLUOXETIN [Concomitant]
     Indication: DEPRESSION
     Route: 065
  7. BROMAZEPAM [Concomitant]
     Indication: HYPERSOMNIA
     Route: 065
  8. BROMAZEPAM [Concomitant]
     Indication: DEPRESSION
     Route: 065

REACTIONS (4)
  - Decreased immune responsiveness [Recovering/Resolving]
  - Multi-vitamin deficiency [Recovering/Resolving]
  - Adverse drug reaction [Unknown]
  - Pulmonary tuberculosis [Recovering/Resolving]
